FAERS Safety Report 17393511 (Version 1)
Quarter: 2020Q1

REPORT INFORMATION
  Report Type: Spontaneous
  Country: US (occurrence: US)
  Receive Date: 20200208
  Receipt Date: 20200208
  Transmission Date: 20200409
  Serious: No
  Sender: FDA-Public Use
  Company Number: US-TEVA-2020-US-1179410

PATIENT
  Age: 11 Year
  Sex: Male

DRUGS (1)
  1. GUANFACINE TEVA [Suspect]
     Active Substance: GUANFACINE HYDROCHLORIDE
     Indication: ATTENTION DEFICIT/HYPERACTIVITY DISORDER
     Dosage: EXTENDED RELATES TABLETS
     Route: 048

REACTIONS (1)
  - Drug ineffective [Unknown]
